FAERS Safety Report 8558218-2 (Version None)
Quarter: 2012Q3

REPORT INFORMATION
  Report Type: 
  Country: None (occurrence: None)
  Receive Date: 20120801
  Receipt Date: 20101213
  Transmission Date: 20120928
  Serious: Yes (Other)
  Sender: FDA-Public Use
  Company Number: US-BAYER-201041921NA

PATIENT
  Age: 40 Year
  Weight: 59.41 kg

DRUGS (1)
  1. MIRENA [Suspect]
     Indication: CONTRACEPTION
     Route: 015
     Dates: start: 20101101, end: 20101117

REACTIONS (4)
  - DEVICE DISLOCATION [None]
  - UTERINE PERFORATION [None]
  - ABDOMINAL PAIN [None]
  - PELVIC PAIN [None]
